FAERS Safety Report 6814542-2 (Version None)
Quarter: 2010Q3

REPORT INFORMATION
  Report Type: 
  Country: None (occurrence: None)
  Receive Date: 20100702
  Receipt Date: 20100617
  Transmission Date: 20110219
  Serious: Yes (Hospitalization)
  Sender: FDA-Public Use
  Company Number: FR-JNJFOC-20100608056

PATIENT
  Sex: Female

DRUGS (8)
  1. IXPRIM [Suspect]
     Indication: PRODUCT USED FOR UNKNOWN INDICATION
     Route: 048
  2. ZAMUDOL [Suspect]
     Indication: PRODUCT USED FOR UNKNOWN INDICATION
     Route: 048
  3. AMIODARONE HYDROCHLORIDE [Concomitant]
     Route: 065
  4. ZOLPIDEM [Concomitant]
     Route: 065
  5. NEXIUM [Concomitant]
     Route: 065
  6. KARDEGIC [Concomitant]
  7. FORLAX [Concomitant]
     Route: 065
  8. ACETAMINOPHEN [Concomitant]
     Route: 065

REACTIONS (4)
  - FATIGUE [None]
  - HYPOGLYCAEMIA [None]
  - NAUSEA [None]
  - VOMITING [None]
